FAERS Safety Report 6686165-X (Version None)
Quarter: 2010Q2

REPORT INFORMATION
  Report Type: 
  Country: None (occurrence: None)
  Receive Date: 20100419
  Receipt Date: 20100409
  Transmission Date: 20101027
  Serious: Yes (Life-Threatening, Hospitalization, Other)
  Sender: FDA-Public Use
  Company Number: PHHO2008US15232

PATIENT
  Sex: Female
  Weight: 63 kg

DRUGS (5)
  1. CERTICAN [Suspect]
     Indication: RENAL TRANSPLANT
     Dosage: 1 MG AM, 0.5 MG PM (BID)
     Route: 048
     Dates: start: 20061024
  2. CERTICAN [Suspect]
     Dosage: 2 MG, BID
  3. NEORAL [Concomitant]
     Indication: RENAL TRANSPLANT
     Dosage: 50 MG, BID
     Route: 048
     Dates: start: 20061024
  4. PREDNISONE [Concomitant]
     Indication: RENAL TRANSPLANT
     Dosage: 5 MG, QOD
     Dates: start: 20061026
  5. REMICADE [Concomitant]
     Indication: RHEUMATOID ARTHRITIS
     Dosage: 300 MG, Q 6 WKS
     Route: 042
     Dates: start: 20010101

REACTIONS (16)
  - ARTERIAL LIGATION [None]
  - BLOOD PRESSURE INCREASED [None]
  - BREAST CANCER [None]
  - BREAST CANCER FEMALE [None]
  - BREAST HAEMORRHAGE [None]
  - BREAST RECONSTRUCTION [None]
  - CHILLS [None]
  - DRAIN REMOVAL [None]
  - HAEMATOMA [None]
  - HAEMATOMA EVACUATION [None]
  - INCISIONAL DRAINAGE [None]
  - MASTECTOMY [None]
  - MYALGIA [None]
  - PYREXIA [None]
  - PYURIA [None]
  - URINARY TRACT INFECTION [None]
